FAERS Safety Report 5523711-3 (Version None)
Quarter: 2007Q4

REPORT INFORMATION
  Report Type: 
  Country: None (occurrence: None)
  Receive Date: 20071121
  Receipt Date: 20071114
  Transmission Date: 20080405
  Serious: Yes (Other)
  Sender: FDA-Public Use
  Company Number: US-JNJFOC-20071106510

PATIENT
  Sex: Male
  Weight: 76.2 kg

DRUGS (2)
  1. DURAGESIC-100 [Suspect]
     Indication: PAIN
     Route: 062
  2. PHENERGAN HCL [Concomitant]
     Indication: NAUSEA
     Route: 048

REACTIONS (4)
  - INCORRECT DRUG ADMINISTRATION DURATION [None]
  - NASOPHARYNGITIS [None]
  - PANCREATITIS [None]
  - WRONG TECHNIQUE IN DRUG USAGE PROCESS [None]
